FAERS Safety Report 4871432-2 (Version None)
Quarter: 2006Q1

REPORT INFORMATION
  Report Type: 
  Country: None (occurrence: None)
  Receive Date: 20060103
  Receipt Date: 20051005
  Transmission Date: 20060701
  Serious: Yes (Hospitalization, Disabling)
  Sender: FDA-Public Use
  Company Number: US-MERCK-0510USA05370

PATIENT
  Age: 53 Year
  Sex: Female
  Weight: 107 kg

DRUGS (2)
  1. VIOXX [Suspect]
     Indication: OSTEOARTHRITIS
     Route: 048
     Dates: start: 20000101, end: 20040901
  2. EXCEDRIN (ACETAMINOPHEN (+) CAFFEINE) [Concomitant]
     Route: 065

REACTIONS (9)
  - ARTERY DISSECTION [None]
  - BLOOD PRESSURE INCREASED [None]
  - CEREBELLAR INFARCTION [None]
  - CONTUSION [None]
  - EPISTAXIS [None]
  - MUSCULOSKELETAL STIFFNESS [None]
  - NECK PAIN [None]
  - ROAD TRAFFIC ACCIDENT [None]
  - SINUS DISORDER [None]
